FAERS Safety Report 4352063-X (Version None)
Quarter: 2004Q2

REPORT INFORMATION
  Report Type: 
  Country: None (occurrence: None)
  Receive Date: 20040429
  Receipt Date: 20040202
  Transmission Date: 20050107
  Serious: No
  Sender: FDA-Public Use
  Company Number: 2004-113359-NL

PATIENT
  Age: 31 Year
  Sex: Female
  Weight: 63.6 kg

DRUGS (4)
  1. NUVARING [Suspect]
     Indication: AMENORRHOEA
     Dosage: DF DAILY VAGINAL
     Route: 067
  2. NUVARING [Suspect]
     Indication: CONTRACEPTION
     Dosage: DF DAILY VAGINAL
     Route: 067
  3. ZYRTEC [Concomitant]
  4. FLONASE [Concomitant]

REACTIONS (1)
  - INTRAOCULAR PRESSURE INCREASED [None]
